FAERS Safety Report 11861630 (Version 3)
Quarter: 2016Q1

REPORT INFORMATION
  Report Type: Spontaneous
  Country: JP (occurrence: JP)
  Receive Date: 20151222
  Receipt Date: 20160212
  Transmission Date: 20160526
  Serious: Yes (Hospitalization, Other)
  Sender: FDA-Public Use
  Company Number: JP-GILEAD-2015-0187890

PATIENT
  Age: 79 Year
  Sex: Female

DRUGS (7)
  1. MUCODYNE [Concomitant]
     Active Substance: CARBOCYSTEINE
     Dosage: 3 DF, UNK
     Route: 048
  2. HARVONI [Suspect]
     Active Substance: LEDIPASVIR\SOFOSBUVIR
     Indication: HEPATIC CIRRHOSIS
     Dosage: 1 DF, UNK
     Route: 048
     Dates: start: 20151205
  3. URSO [Concomitant]
     Active Substance: URSODIOL
     Dosage: UNK
     Route: 048
  4. SELARA [Concomitant]
     Active Substance: EPLERENONE
     Dosage: 50 MG, UNK
     Route: 065
  5. CONIEL [Concomitant]
     Active Substance: BENIDIPINE HYDROCHLORIDE
     Dosage: 8 MG, UNK
     Route: 048
  6. SYMBICORT [Concomitant]
     Active Substance: BUDESONIDE\FORMOTEROL FUMARATE DIHYDRATE
     Dosage: 2 TIMES, BID
     Route: 055
  7. CALONAL [Concomitant]
     Active Substance: ACETAMINOPHEN
     Dosage: UNK, PRN
     Route: 065

REACTIONS (1)
  - Oesophageal varices haemorrhage [Recovered/Resolved]

NARRATIVE: CASE EVENT DATE: 20151209
